FAERS Safety Report 25114081 (Version 2)
Quarter: 2025Q2

REPORT INFORMATION
  Report Type: Spontaneous
  Country: US (occurrence: US)
  Receive Date: 20250324
  Receipt Date: 20250402
  Transmission Date: 20250716
  Serious: No
  Sender: BAUSCH AND LOMB
  Company Number: US-BAUSCHBL-2025BNL004733

PATIENT
  Age: 86 Year
  Sex: Male

DRUGS (2)
  1. LATANOPROST [Suspect]
     Active Substance: LATANOPROST
     Indication: Glaucoma
     Route: 065
     Dates: start: 2015
  2. LATANOPROST [Suspect]
     Active Substance: LATANOPROST
     Route: 065

REACTIONS (5)
  - Nail injury [Unknown]
  - Product package associated injury [Unknown]
  - Product packaging difficult to open [Unknown]
  - Wrong technique in product usage process [Unknown]
  - Product use complaint [Unknown]
